FAERS Safety Report 5326319-8 (Version None)
Quarter: 2007Q2

REPORT INFORMATION
  Report Type: 
  Country: None (occurrence: None)
  Receive Date: 20070514
  Receipt Date: 20070514
  Transmission Date: 20071010
  Serious: Yes (Life-Threatening, Hospitalization)
  Sender: FDA-Public Use
  Company Number: None

PATIENT
  Sex: Female
  Weight: 72.5755 kg

DRUGS (1)
  1. CHLORZOXAZONE [Suspect]
     Indication: BACK PAIN
     Dosage: ONE TABLET TWICE DAILY PO
     Route: 048
     Dates: start: 20070119, end: 20070503

REACTIONS (3)
  - ANOREXIA [None]
  - FATIGUE [None]
  - HEPATITIS CHOLESTATIC [None]
